FAERS Safety Report 10230429 (Version 1)
Quarter: 2014Q2

REPORT INFORMATION
  Report Type: Spontaneous
  Country: US (occurrence: US)
  Receive Date: 20140611
  Receipt Date: 20140611
  Transmission Date: 20141212
  Serious: No
  Sender: FDA-Public Use
  Company Number: US-INCYTE CORPORATION-2014IN000674

PATIENT
  Sex: Female

DRUGS (16)
  1. JAKAFI [Suspect]
     Indication: MYELOFIBROSIS
     Dosage: 5 MG, BID
     Route: 048
     Dates: start: 20130722
  2. HYDROCODONE BITARTRATE AND ACETAMINOPHEN [Concomitant]
  3. LIDOCAINE                          /00033402/ [Concomitant]
  4. LIDODERM [Concomitant]
  5. RESTASIS [Concomitant]
  6. SIMVASTATIN [Concomitant]
  7. TRAMADOL [Concomitant]
  8. VOLTAREN                           /00372301/ [Concomitant]
  9. ARANESP [Concomitant]
  10. BENADRYL                           /00000402/ [Concomitant]
  11. ECOTRIN [Concomitant]
  12. MULTIVITAMIN                       /00097801/ [Concomitant]
  13. PROCRIT                            /00909301/ [Concomitant]
  14. VITAMIN D                          /00107901/ [Concomitant]
  15. SODIUM BICARBONATE [Concomitant]
  16. NEXIUM                             /01479302/ [Concomitant]

REACTIONS (1)
  - Blood pressure increased [Unknown]
